FAERS Safety Report 8202271-2 (Version None)
Quarter: 2012Q1

REPORT INFORMATION
  Report Type: 
  Country: None (occurrence: None)
  Receive Date: 20120312
  Receipt Date: 20120305
  Transmission Date: 20120608
  Serious: Yes (Hospitalization)
  Sender: FDA-Public Use
  Company Number: US-BAYER-2012-022453

PATIENT
  Age: 39 Year
  Sex: Female

DRUGS (3)
  1. YAZ [Suspect]
     Dosage: UNK UNK, ONCE
     Route: 048
  2. EFFEXOR [Concomitant]
     Dosage: 75 MG, QD
     Route: 048
  3. AVELOX [Concomitant]
     Indication: SINUSITIS
     Dosage: 400 MG, QD
     Route: 048

REACTIONS (1)
  - PULMONARY EMBOLISM [None]
